FAERS Safety Report 11699071 (Version 1)
Quarter: 2015Q4

REPORT INFORMATION
  Report Type: Spontaneous
  Country: IT (occurrence: IT)
  Receive Date: 20151104
  Receipt Date: 20151104
  Transmission Date: 20160304
  Serious: Yes (Other)
  Sender: FDA-Public Use
  Company Number: IT-ASTRAZENECA-2015SF05255

PATIENT
  Age: 39 Year
  Sex: Female
  Weight: 60 kg

DRUGS (4)
  1. TALOFEN [Suspect]
     Active Substance: PROMAZINE HYDROCHLORIDE
     Dosage: 4 G/100 ML ORAL DROPS, SOLUTION
     Route: 048
     Dates: start: 20151008
  2. HALDOL [Suspect]
     Active Substance: HALOPERIDOL
     Dosage: 2 MG/ML ORAL DROPS, SOLUTION
     Route: 048
     Dates: start: 20151008
  3. SEROQUEL [Suspect]
     Active Substance: QUETIAPINE FUMARATE
     Route: 048
     Dates: start: 20151008
  4. RIVOTRIL [Suspect]
     Active Substance: CLONAZEPAM
     Dosage: 2.5 MG/ML ORAL DROPS, SOLUTION
     Route: 048
     Dates: start: 20151008

REACTIONS (2)
  - Drug abuse [Unknown]
  - Intentional product misuse [Unknown]

NARRATIVE: CASE EVENT DATE: 20151008
